FAERS Safety Report 6896679-5 (Version None)
Quarter: 2010Q3

REPORT INFORMATION
  Report Type: 
  Country: None (occurrence: None)
  Receive Date: 20100802
  Receipt Date: 20070215
  Transmission Date: 20110219
  Serious: Yes (Life-Threatening, Other)
  Sender: FDA-Public Use
  Company Number: US-PFIZER INC-2006155876

PATIENT
  Sex: Female
  Weight: 68 kg

DRUGS (9)
  1. LYRICA [Suspect]
     Indication: NEUROPATHY PERIPHERAL
     Dates: start: 20061101, end: 20061218
  2. DURAGESIC-100 [Concomitant]
  3. NORMODYNE [Concomitant]
  4. AVALIDE [Concomitant]
  5. NORVASC [Concomitant]
  6. CARDURA [Concomitant]
  7. LIPITOR [Concomitant]
  8. ALL OTHER THERAPEUTIC PRODUCTS [Concomitant]
  9. GLUCOSAMINE [Concomitant]

REACTIONS (1)
  - OEDEMA [None]
